FAERS Safety Report 5991099-X (Version None)
Quarter: 2008Q4

REPORT INFORMATION
  Report Type: 
  Country: None (occurrence: None)
  Receive Date: 20081211
  Receipt Date: 20081203
  Transmission Date: 20090506
  Serious: Yes (Hospitalization)
  Sender: FDA-Public Use
  Company Number: US-TYCO HEALTHCARE/MALLINCKRODT-T200801606

PATIENT

DRUGS (10)
  1. SODIUM IODIDE I 131 /THERAPY/ CAP [Suspect]
     Indication: RADIOACTIVE IODINE THERAPY
     Dosage: 201.4 MCI, SINGLE
     Route: 048
     Dates: start: 20080929, end: 20080929
  2. ENALAPRIL MALEATE [Concomitant]
     Route: 048
  3. TOPROL-XL [Concomitant]
  4. ARIMIDEX [Concomitant]
     Route: 048
  5. SYNTHROID [Concomitant]
     Route: 048
     Dates: end: 20080101
  6. HYDROCODONE BITARTRATE [Concomitant]
     Route: 048
  7. ASPIRIN [Concomitant]
     Route: 048
  8. MULTI-VITAMINS [Concomitant]
     Route: 048
  9. DEXAMETHASONE [Concomitant]
     Indication: DRUG USE FOR UNKNOWN INDICATION
     Dosage: 4 MG, QID
  10. PEPCID [Concomitant]
     Indication: DRUG USE FOR UNKNOWN INDICATION
     Dosage: 20 MG, BID

REACTIONS (3)
  - LOCAL SWELLING [None]
  - SINUS HEADACHE [None]
  - UPPER AIRWAY OBSTRUCTION [None]
